FAERS Safety Report 23128197 (Version 2)
Quarter: 2023Q4

REPORT INFORMATION
  Report Type: Spontaneous
  Country: US (occurrence: US)
  Receive Date: 20231031
  Receipt Date: 20231129
  Transmission Date: 20240110
  Serious: Yes (Hospitalization, Other)
  Sender: FDA-Public Use
  Company Number: US-MLMSERVICE-20231017-4605678-1

PATIENT
  Age: 16 Year
  Sex: Male

DRUGS (17)
  1. METHOTREXATE [Interacting]
     Active Substance: METHOTREXATE
     Indication: B-cell type acute leukaemia
     Dosage: UNK, CYCLICAL
     Route: 065
  2. METHOTREXATE [Interacting]
     Active Substance: METHOTREXATE
     Indication: Hyperbilirubinaemia
  3. METHOTREXATE [Interacting]
     Active Substance: METHOTREXATE
     Indication: Ocular icterus
  4. METHOTREXATE [Interacting]
     Active Substance: METHOTREXATE
     Indication: Hypertransaminasaemia
  5. ALLOPURINOL [Interacting]
     Active Substance: ALLOPURINOL
     Indication: B-cell type acute leukaemia
     Dosage: 100 MILLIGRAM, ONCE A DAY
     Route: 065
  6. MERCAPTOPURINE [Interacting]
     Active Substance: MERCAPTOPURINE
     Indication: Ocular icterus
     Dosage: UNK
     Route: 065
  7. MERCAPTOPURINE [Interacting]
     Active Substance: MERCAPTOPURINE
     Indication: Hyperbilirubinaemia
     Dosage: 37.5 MILLIGRAM/SQ. METER, ONCE A DAY (REDUCED BY 50 %)
     Route: 065
  8. MERCAPTOPURINE [Interacting]
     Active Substance: MERCAPTOPURINE
     Indication: B-cell type acute leukaemia
  9. MERCAPTOPURINE [Interacting]
     Active Substance: MERCAPTOPURINE
     Indication: Hypertransaminasaemia
  10. PREDNISONE [Concomitant]
     Active Substance: PREDNISONE
     Indication: B-cell type acute leukaemia
     Dosage: UNK, CYCLIC
     Route: 065
  11. PREDNISONE [Concomitant]
     Active Substance: PREDNISONE
     Indication: Hyperbilirubinaemia
  12. PREDNISONE [Concomitant]
     Active Substance: PREDNISONE
     Indication: Hypertransaminasaemia
  13. PREDNISONE [Concomitant]
     Active Substance: PREDNISONE
     Indication: Ocular icterus
  14. VINCRISTINE [Concomitant]
     Active Substance: VINCRISTINE
     Indication: Hyperbilirubinaemia
     Dosage: UNK, CYCLIC
     Route: 065
  15. VINCRISTINE [Concomitant]
     Active Substance: VINCRISTINE
     Indication: Hypertransaminasaemia
  16. VINCRISTINE [Concomitant]
     Active Substance: VINCRISTINE
     Indication: Ocular icterus
  17. VINCRISTINE [Concomitant]
     Active Substance: VINCRISTINE
     Indication: B-cell type acute leukaemia

REACTIONS (2)
  - Anaemia megaloblastic [Unknown]
  - Drug interaction [Unknown]
